FAERS Safety Report 13598534 (Version 2)
Quarter: 2017Q2

REPORT INFORMATION
  Report Type: Report from Study
  Country: DE (occurrence: DE)
  Receive Date: 20170531
  Receipt Date: 20170614
  Transmission Date: 20170912
  Serious: Yes (Hospitalization)
  Sender: FDA-Public Use
  Company Number: DE-JNJFOC-20170527553

PATIENT
  Age: 82 Year
  Sex: Male
  Weight: 100 kg

DRUGS (16)
  1. ACETYLSALICYLIC ACID [Suspect]
     Active Substance: ASPIRIN
     Indication: THROMBOSIS PROPHYLAXIS
     Route: 048
     Dates: start: 20170505
  2. METFORMIN [Concomitant]
     Route: 048
     Dates: start: 1996
  3. ASPIRIN. [Concomitant]
     Active Substance: ASPIRIN
     Route: 048
     Dates: start: 1997, end: 20170504
  4. RIVAROXABAN [Suspect]
     Active Substance: RIVAROXABAN
     Indication: AORTIC VALVE REPLACEMENT
     Route: 048
     Dates: start: 20170505
  5. TAMSULOSIN [Concomitant]
     Active Substance: TAMSULOSIN
     Route: 048
     Dates: start: 2010
  6. NOVORAPID [Concomitant]
     Route: 058
     Dates: start: 1997
  7. RAMIPRIL [Concomitant]
     Route: 048
     Dates: start: 20170530
  8. DILTIAZEM [Concomitant]
     Route: 048
     Dates: start: 20170504
  9. RAMIPRIL [Concomitant]
     Route: 048
     Dates: start: 1997, end: 20170529
  10. ACETYLSALICYLIC ACID [Suspect]
     Active Substance: ASPIRIN
     Indication: AORTIC VALVE REPLACEMENT
     Route: 048
     Dates: start: 20170505
  11. SIMVASTATIN [Concomitant]
     Route: 048
     Dates: start: 1997
  12. HCT [Concomitant]
     Active Substance: HYDROCHLOROTHIAZIDE
     Route: 048
     Dates: start: 1997
  13. FINASTERIDE. [Concomitant]
     Active Substance: FINASTERIDE
     Route: 048
     Dates: start: 2010
  14. DILTIAZEM [Concomitant]
     Route: 048
     Dates: start: 1997, end: 20170504
  15. AMLODIPINE [Concomitant]
     Route: 048
     Dates: start: 20170530
  16. LANTUS [Concomitant]
     Route: 058
     Dates: start: 1997

REACTIONS (1)
  - Vascular pseudoaneurysm [Recovered/Resolved]

NARRATIVE: CASE EVENT DATE: 20170523
